FAERS Safety Report 4545224-8 (Version None)
Quarter: 2005Q1

REPORT INFORMATION
  Report Type: 
  Country: None (occurrence: None)
  Receive Date: 20050103
  Receipt Date: 20041216
  Transmission Date: 20050727
  Serious: Yes (Hospitalization)
  Sender: FDA-Public Use
  Company Number: 2004-UK-00672UK

PATIENT
  Age: 42 Year
  Sex: Female

DRUGS (3)
  1. COMBIVENT [Suspect]
     Indication: ASTHMA
     Dosage: 2 DOSES, 3 TIMES DAILY (3 TIMES A DAY) IH
     Route: 055
     Dates: start: 20040602, end: 20040615
  2. VENTOLIN [Suspect]
     Indication: ASTHMA
     Dosage: 2 DOSES 3 TIMES DAILY (THREE TIMES A DAY)
     Dates: start: 20040602, end: 20040615
  3. QUININE SULPHATE (QUININE SULFATE) [Concomitant]

REACTIONS (4)
  - AGITATION [None]
  - EUPHORIC MOOD [None]
  - FEELING ABNORMAL [None]
  - HALLUCINATION [None]
